FAERS Safety Report 9753546 (Version 2)
Quarter: 2013Q4

REPORT INFORMATION
  Report Type: Spontaneous
  Country: US (occurrence: None)
  Receive Date: 20131211
  Receipt Date: 20131218
  Transmission Date: 20140711
  Serious: Yes (Hospitalization)
  Sender: FDA-Public Use
  Company Number: AUR-APL-2013-10177

PATIENT
  Age: 43 Year
  Sex: Male

DRUGS (13)
  1. OXYCODONE/PARACETAMOL [Suspect]
     Indication: PRODUCT USED FOR UNKNOWN INDICATION
  2. VINBLASTINE [Suspect]
     Indication: ACQUIRED IMMUNODEFICIENCY SYNDROME
  3. VINBLASTINE [Suspect]
     Indication: CLOSTRIDIUM DIFFICILE COLITIS
  4. VINBLASTINE [Suspect]
     Indication: HODGKIN^S DISEASE
  5. BLEOMYCIN [Suspect]
     Indication: ACQUIRED IMMUNODEFICIENCY SYNDROME
  6. BLEOMYCIN [Suspect]
     Indication: CLOSTRIDIUM DIFFICILE COLITIS
  7. BLEOMYCIN [Suspect]
  8. DACARBAZINE (DACARBAZINE) [Suspect]
     Indication: ACQUIRED IMMUNODEFICIENCY SYNDROME
  9. DACARBAZINE (DACARBAZINE) [Suspect]
  10. DACARBAZINE (DACARBAZINE) [Suspect]
     Indication: HODGKIN^S DISEASE
  11. DOXORUBICIN [Suspect]
     Indication: ACQUIRED IMMUNODEFICIENCY SYNDROME
  12. DOXORUBICIN [Suspect]
     Indication: CLOSTRIDIUM DIFFICILE COLITIS
  13. DOXORUBICIN [Suspect]
     Indication: HODGKIN^S DISEASE

REACTIONS (8)
  - Clostridium difficile infection [None]
  - Abdominal distension [None]
  - Abdominal tenderness [None]
  - Pancytopenia [None]
  - Gastrointestinal disorder [None]
  - Abdominal pain [None]
  - Constipation [None]
  - Colitis [None]
